FAERS Safety Report 4463642-3 (Version None)
Quarter: 2004Q3

REPORT INFORMATION
  Report Type: 
  Country: None (occurrence: None)
  Receive Date: 20040929
  Receipt Date: 20040910
  Transmission Date: 20050211
  Serious: Yes (Hospitalization)
  Sender: FDA-Public Use
  Company Number: JP_040904341

PATIENT
  Age: 57 Year
  Sex: Female
  Weight: 58 kg

DRUGS (5)
  1. HUMALOG [Suspect]
     Indication: DIABETES MELLITUS NON-INSULIN-DEPENDENT
     Dosage: 4 U/3 DAY
     Dates: start: 20030818, end: 20030826
  2. LEVOTHYROXINE SODIUM [Concomitant]
  3. AMARYL [Concomitant]
  4. METFORMIN HCL [Concomitant]
  5. PRAVASTATIN [Concomitant]

REACTIONS (2)
  - BIOPSY STOMACH ABNORMAL [None]
  - REFUSAL OF TREATMENT BY PATIENT [None]
